FAERS Safety Report 4274582-7 (Version None)
Quarter: 2004Q1

REPORT INFORMATION
  Report Type: 
  Country: None (occurrence: None)
  Receive Date: 20040120
  Receipt Date: 20040120
  Transmission Date: 20041129
  Serious: Yes (Disabling)
  Sender: FDA-Public Use
  Company Number: None

PATIENT
  Sex: Male
  Weight: 86.1834 kg

DRUGS (4)
  1. PAXIL [Suspect]
     Indication: DEPRESSION
     Dosage: 20 MG 1 A DAY ORAL
     Route: 048
     Dates: start: 20021101, end: 20030601
  2. PAXIL [Suspect]
     Indication: SOCIAL PHOBIA
     Dosage: 20 MG 1 A DAY ORAL
     Route: 048
     Dates: start: 20021101, end: 20030601
  3. PAXIL [Suspect]
     Indication: DEPRESSION
     Dosage: 40 MG 1 A DAY ORAL
     Route: 048
     Dates: start: 20030602, end: 20040117
  4. PAXIL [Suspect]
     Indication: SOCIAL PHOBIA
     Dosage: 40 MG 1 A DAY ORAL
     Route: 048
     Dates: start: 20030602, end: 20040117

REACTIONS (25)
  - ABNORMAL BEHAVIOUR [None]
  - ANXIETY [None]
  - APATHY [None]
  - DECREASED ACTIVITY [None]
  - DIZZINESS [None]
  - DRUG DEPENDENCE [None]
  - DRUG INEFFECTIVE [None]
  - EYE MOVEMENT DISORDER [None]
  - FAMILY STRESS [None]
  - FATIGUE [None]
  - FLAT AFFECT [None]
  - HALLUCINATION [None]
  - INSOMNIA [None]
  - NAUSEA [None]
  - NERVOUS SYSTEM DISORDER [None]
  - NIGHTMARE [None]
  - PAIN [None]
  - PERSECUTORY DELUSION [None]
  - PERSONALITY CHANGE [None]
  - PHOBIC AVOIDANCE [None]
  - SCREAMING [None]
  - STARING [None]
  - THINKING ABNORMAL [None]
  - VERTIGO [None]
  - WEIGHT INCREASED [None]
